FAERS Safety Report 7776845-7 (Version None)
Quarter: 2011Q3

REPORT INFORMATION
  Report Type: 
  Country: None (occurrence: None)
  Receive Date: 20110926
  Receipt Date: 20110913
  Transmission Date: 20111222
  Serious: Yes (Hospitalization, Other)
  Sender: FDA-Public Use
  Company Number: CA-ELI_LILLY_AND_COMPANY-CA201109003916

PATIENT
  Age: 60 Year
  Sex: Male

DRUGS (15)
  1. FORTEO [Suspect]
     Indication: OSTEOPOROSIS
     Dosage: 20 UG, QD
     Route: 058
     Dates: start: 20110709
  2. KALETRA [Concomitant]
  3. EFFEXOR [Concomitant]
  4. CELEXA [Concomitant]
  5. CYCLOPHOSPHAMIDE [Concomitant]
  6. RATIO-OMEPRAZOLE [Concomitant]
  7. FOLIC ACID [Concomitant]
  8. GLUCOPHAGE [Concomitant]
  9. CALCITE D [Concomitant]
  10. NAPROXEN [Concomitant]
  11. ABACAVIR SULFATE AND LAMIVUDINE [Concomitant]
  12. ATIVAN [Concomitant]
  13. PRAVASTATIN [Concomitant]
  14. METFORMIN HCL [Concomitant]
  15. FERROUS SULFATE TAB [Concomitant]

REACTIONS (3)
  - CENTRAL NERVOUS SYSTEM LESION [None]
  - RENAL IMPAIRMENT [None]
  - CONFUSIONAL STATE [None]
